FAERS Safety Report 12692444 (Version 2)
Quarter: 2016Q3

REPORT INFORMATION
  Report Type: Report from Study
  Country: US (occurrence: US)
  Receive Date: 20160829
  Receipt Date: 20160906
  Transmission Date: 20161109
  Serious: No
  Sender: FDA-Public Use
  Company Number: US-AMGEN-USASL2016107040

PATIENT
  Age: 68 Year
  Sex: Female

DRUGS (1)
  1. ENBREL [Suspect]
     Active Substance: ETANERCEPT
     Indication: RHEUMATOID ARTHRITIS
     Dosage: 50 MG, QWK
     Route: 065
     Dates: start: 20160805

REACTIONS (5)
  - Rash [Not Recovered/Not Resolved]
  - Hyperhidrosis [Unknown]
  - Eye irritation [Unknown]
  - Adverse event [Unknown]
  - Pruritus generalised [Unknown]

NARRATIVE: CASE EVENT DATE: 201608
